FAERS Safety Report 19429800 (Version 1)
Quarter: 2021Q2

REPORT INFORMATION
  Report Type: Report from Study
  Country: None (occurrence: IL)
  Receive Date: 20210617
  Receipt Date: 20210617
  Transmission Date: 20210717
  Serious: Yes (Death, Other)
  Sender: FDA-Public Use
  Company Number: IL-ABBVIE-21K-082-3951741-00

PATIENT
  Age: 77 Year
  Sex: Male
  Weight: 91.8 kg

DRUGS (13)
  1. SLOW K [Concomitant]
     Active Substance: POTASSIUM CHLORIDE
     Indication: HYPOKALAEMIA
     Dosage: SR
     Route: 048
  2. KALURIL [Concomitant]
     Indication: HYPERTENSION
     Route: 048
     Dates: start: 20200528, end: 20200528
  3. CONCOR [Concomitant]
     Active Substance: BISOPROLOL FUMARATE
     Indication: HYPERTENSION
     Route: 048
  4. VENETOCLAX. [Suspect]
     Active Substance: VENETOCLAX
     Indication: ACUTE MYELOID LEUKAEMIA
     Dosage: RAMP UP
     Route: 048
     Dates: start: 20200528, end: 20200528
  5. CANDESARTAN. [Concomitant]
     Active Substance: CANDESARTAN
     Indication: HYPERTENSION
     Route: 048
  6. AMLOW [Concomitant]
     Active Substance: AMLODIPINE MALEATE
     Indication: HYPERTENSION
     Route: 048
     Dates: start: 20200613, end: 20200614
  7. VENETOCLAX. [Suspect]
     Active Substance: VENETOCLAX
     Dosage: RAMP UP
     Route: 048
     Dates: start: 20200529, end: 20200529
  8. POTASSIUM CHLORIDE. [Concomitant]
     Active Substance: POTASSIUM CHLORIDE
     Indication: HYPOKALAEMIA
     Route: 048
  9. VENETOCLAX. [Suspect]
     Active Substance: VENETOCLAX
     Dosage: DISCONTINUATION, THE PATIENT WAS REFERRED TO BMT
     Route: 048
     Dates: start: 20200530, end: 20200803
  10. AZACITIDINE. [Suspect]
     Active Substance: AZACITIDINE
     Indication: ACUTE MYELOID LEUKAEMIA
     Dosage: 156 MG, CYCLE 1
     Route: 058
     Dates: start: 20200528, end: 20200603
  11. ALLORIL [Concomitant]
     Active Substance: ALLOPURINOL
     Indication: PROPHYLAXIS
     Route: 048
     Dates: start: 20200528, end: 20200608
  12. KYTRIL [Concomitant]
     Active Substance: GRANISETRON HYDROCHLORIDE
     Indication: PROPHYLAXIS
     Route: 042
     Dates: start: 20200528, end: 20200606
  13. AZACITIDINE. [Suspect]
     Active Substance: AZACITIDINE
     Dosage: 156 MG, CYCLE 2
     Route: 058
     Dates: start: 20200628, end: 20200705

REACTIONS (14)
  - Folliculitis [Recovering/Resolving]
  - Back pain [Not Recovered/Not Resolved]
  - Anaemia [Not Recovered/Not Resolved]
  - Oedema peripheral [Recovered/Resolved]
  - Constipation [Recovered/Resolved]
  - Diarrhoea [Recovered/Resolved]
  - Hypomagnesaemia [Recovering/Resolving]
  - Hypertension [Recovered/Resolved]
  - Thrombocytopenia [Not Recovered/Not Resolved]
  - Phlebitis [Recovered/Resolved]
  - Febrile neutropenia [Recovered/Resolved]
  - Deep vein thrombosis [Recovered/Resolved]
  - Disease progression [Fatal]
  - Neutropenia [Not Recovered/Not Resolved]

NARRATIVE: CASE EVENT DATE: 20200528
